FAERS Safety Report 6277611-4 (Version None)
Quarter: 2009Q3

REPORT INFORMATION
  Report Type: 
  Country: None (occurrence: None)
  Receive Date: 20090722
  Receipt Date: 20090505
  Transmission Date: 20100115
  Serious: No
  Sender: FDA-Public Use
  Company Number: US-BAYER-200920152NA

PATIENT
  Age: 65 Year
  Sex: Female
  Weight: 58 kg

DRUGS (2)
  1. CLIMARA [Suspect]
     Indication: MENOPAUSAL SYMPTOMS
     Dosage: CONTINUOUS DELIVERY FOR ONCE WEEKLY APPLICATION
     Route: 062
  2. PROGESTERONE (NATURAL) [Concomitant]
     Indication: HORMONE REPLACEMENT THERAPY

REACTIONS (3)
  - ANXIETY [None]
  - DEPRESSION [None]
  - FEELING HOT [None]
